FAERS Safety Report 20775763 (Version 3)
Quarter: 2022Q2

REPORT INFORMATION
  Report Type: Spontaneous
  Country: US (occurrence: US)
  Receive Date: 20220502
  Receipt Date: 20220524
  Transmission Date: 20220720
  Serious: Yes (Death, Other)
  Sender: FDA-Public Use
  Company Number: US-PFIZER INC-202200623914

PATIENT
  Age: 89 Year
  Sex: Female
  Weight: 45.351 kg

DRUGS (11)
  1. PAXLOVID [Suspect]
     Active Substance: NIRMATRELVIR\RITONAVIR
     Indication: COVID-19 treatment
     Dosage: UNK
     Route: 048
     Dates: start: 20220422
  2. ROSUVASTATIN CALCIUM [Concomitant]
     Active Substance: ROSUVASTATIN CALCIUM
     Dosage: 10 MG, 1X/DAY (TAKE ONE TABLET ONCE DAILY BD)
     Route: 048
  3. MAPAP [Concomitant]
     Active Substance: ACETAMINOPHEN
     Indication: Pain
     Dosage: 500 MG, DAILY (TAKE AN ADDITIONAL 1 TABLET 3 TIMES DAILY AS NEEDED)
     Route: 048
  4. ENSURE [Concomitant]
     Active Substance: AMINO ACIDS\DEXTROSE\ELECTROLYTES NOS\SOYBEAN OIL\VITAMINS
     Dosage: UNK, MONTHLY
  5. ACETAMINOPHEN [Concomitant]
     Active Substance: ACETAMINOPHEN
     Dosage: 500 MG, DAILY (TAKE ONE TABLET ONCE DAILY SCHEDULED)
     Route: 048
  6. ACETAMINOPHEN [Concomitant]
     Active Substance: ACETAMINOPHEN
     Dosage: 500 MG, 3X/DAY (TAKE 1 TABLET 3 TIMES DAILY AS NEEDED)
  7. BACLOFEN [Concomitant]
     Active Substance: BACLOFEN
     Dosage: 5 MG, 2X/DAY (TAKE ONE TABLET TWO TIMES A DAY)
     Route: 048
  8. ESCITALOPRAM [Concomitant]
     Active Substance: ESCITALOPRAM OXALATE
     Dosage: 15 MG, 1X/DAY (TAKE ONE TABLET ONCE DAILY WITH 5MG FOR TDD=15MG)
     Route: 048
  9. METOPROLOL SUCCINATE [Concomitant]
     Active Substance: METOPROLOL SUCCINATE
     Dosage: 1.5 DF, 1X/DAY (TAKE 1/2 TABLET ONCE DAILY)
     Route: 048
  10. TRAMADOL HCL [Concomitant]
     Active Substance: TRAMADOL HYDROCHLORIDE
     Dosage: 75 MG, 1X/DAY (50MG/ TAKE 1/2 TABLET THREE TIMES A DAY)
     Route: 048
  11. XARELTO [Concomitant]
     Active Substance: RIVAROXABAN
     Dosage: 15 MG, 1X/DAY (TAKE ONE TABLET ONCE DAILY)

REACTIONS (5)
  - Death [Fatal]
  - Failure to thrive [Unknown]
  - Intentional product misuse [Unknown]
  - Wrong technique in product usage process [Unknown]
  - Cerebrovascular disorder [Unknown]

NARRATIVE: CASE EVENT DATE: 20220501
